FAERS Safety Report 11610510 (Version 3)
Quarter: 2015Q4

REPORT INFORMATION
  Report Type: Report from Study
  Country: US (occurrence: US)
  Receive Date: 20151008
  Receipt Date: 20151116
  Transmission Date: 20160304
  Serious: No
  Sender: FDA-Public Use
  Company Number: US-AMGEN-USASL2015100847

PATIENT
  Age: 64 Year
  Sex: Female

DRUGS (1)
  1. ENBREL [Suspect]
     Active Substance: ETANERCEPT
     Indication: RHEUMATOID ARTHRITIS
     Dosage: 50 MG, QWK
     Route: 065
     Dates: start: 2005

REACTIONS (11)
  - Malaise [Unknown]
  - Injection site swelling [Unknown]
  - Injection site bruising [Unknown]
  - Device issue [Unknown]
  - Injection site erythema [Unknown]
  - Injection site pruritus [Unknown]
  - Injection site reaction [Unknown]
  - Injection site vesicles [Unknown]
  - Drug dose omission [Unknown]
  - Injection site rash [Unknown]
  - Pain [Unknown]

NARRATIVE: CASE EVENT DATE: 2015
